FAERS Safety Report 12462601 (Version 1)
Quarter: 2016Q2

REPORT INFORMATION
  Report Type: Spontaneous
  Country: IN (occurrence: IN)
  Receive Date: 20160614
  Receipt Date: 20160614
  Transmission Date: 20160815
  Serious: No
  Sender: FDA-Public Use
  Company Number: IN-LUPIN PHARMACEUTICALS INC.-E2B_00005362

PATIENT
  Age: 26 Year
  Sex: Female

DRUGS (1)
  1. DICLONAC GEL [Suspect]
     Active Substance: DICLOFENAC
     Indication: NECK PAIN
     Route: 061
     Dates: start: 20160416

REACTIONS (1)
  - Pruritus [Not Recovered/Not Resolved]

NARRATIVE: CASE EVENT DATE: 20160420
